FAERS Safety Report 14186172 (Version 1)
Quarter: 2017Q4

REPORT INFORMATION
  Report Type: Spontaneous
  Country: US (occurrence: US)
  Receive Date: 20171114
  Receipt Date: 20171114
  Transmission Date: 20180321
  Serious: No
  Sender: FDA-Public Use
  Company Number: US-BAYER-2017-218849

PATIENT
  Age: 10 Year
  Sex: Female
  Weight: 36.28 kg

DRUGS (1)
  1. ALEVE [Suspect]
     Active Substance: NAPROXEN SODIUM
     Indication: PAIN
     Dosage: 0.5 DF, PRN
     Route: 048

REACTIONS (2)
  - Drug administered to patient of inappropriate age [Unknown]
  - Underdose [Unknown]
